FAERS Safety Report 21710335 (Version 3)
Quarter: 2022Q4

REPORT INFORMATION
  Report Type: Report from Study
  Country: US (occurrence: US)
  Receive Date: 20221211
  Receipt Date: 20221215
  Transmission Date: 20230113
  Serious: Yes (Hospitalization)
  Sender: FDA-Public Use
  Company Number: US-ABBVIE-4230233

PATIENT
  Age: 81 Year
  Sex: Female

DRUGS (1)
  1. MAVYRET [Suspect]
     Active Substance: GLECAPREVIR\PIBRENTASVIR
     Indication: Hepatitis C
     Dosage: TAKE THREE TABLETS IN ONE DAY
     Route: 048

REACTIONS (3)
  - Urinary tract infection [Unknown]
  - Myocarditis bacterial [Unknown]
  - Pyrexia [Unknown]

NARRATIVE: CASE EVENT DATE: 20220930
